FAERS Safety Report 6832082-1 (Version None)
Quarter: 2010Q3

REPORT INFORMATION
  Report Type: 
  Country: None (occurrence: None)
  Receive Date: 20100712
  Receipt Date: 20100702
  Transmission Date: 20110219
  Serious: Yes (Death, Other)
  Sender: FDA-Public Use
  Company Number: US-AMGEN-QUU413544

PATIENT
  Sex: Male
  Weight: 71.3 kg

DRUGS (17)
  1. NPLATE [Suspect]
     Indication: IDIOPATHIC THROMBOCYTOPENIC PURPURA
     Dates: start: 20100223, end: 20100316
  2. GEMZAR [Concomitant]
     Dates: start: 20090212
  3. TAXOTERE [Concomitant]
     Dates: start: 20090820
  4. CORTICOSTEROIDS [Concomitant]
     Dates: start: 20091215
  5. GLIPIZIDE [Concomitant]
  6. SIMVASTATIN [Concomitant]
  7. TYLENOL (CAPLET) [Concomitant]
  8. UNSPECIFIED ANTIEMETIC [Concomitant]
  9. STOOL SOFTENER [Concomitant]
  10. MILK OF MAGNESIA TAB [Concomitant]
  11. VICODIN [Concomitant]
     Route: 048
  12. IBUPROFEN [Concomitant]
  13. FISH OIL [Concomitant]
  14. MIRALAX [Concomitant]
  15. PREDNISONE [Concomitant]
  16. LANTUS [Concomitant]
  17. HUMALOG [Concomitant]

REACTIONS (7)
  - ADENOCARCINOMA PANCREAS [None]
  - ASCITES [None]
  - ASTHENIA [None]
  - MALIGNANT NEOPLASM PROGRESSION [None]
  - METASTASES TO LIVER [None]
  - OEDEMA PERIPHERAL [None]
  - TELANGIECTASIA [None]
